FAERS Safety Report 5956362-7 (Version None)
Quarter: 2008Q4

REPORT INFORMATION
  Report Type: 
  Country: None (occurrence: None)
  Receive Date: 20081112
  Receipt Date: 20081030
  Transmission Date: 20090506
  Serious: Yes (Hospitalization, Other)
  Sender: FDA-Public Use
  Company Number: 2008AL004724

PATIENT
  Age: 74 Year
  Sex: Female

DRUGS (1)
  1. DIGOXIN [Suspect]
     Indication: ARRHYTHMIA
     Dosage: 0.25MG, DAILY, PO
     Route: 048

REACTIONS (7)
  - BLOOD PRESSURE FLUCTUATION [None]
  - BRADYCARDIA [None]
  - CARDIAC DISORDER [None]
  - HEART RATE ABNORMAL [None]
  - HYPOTENSION [None]
  - THERAPEUTIC AGENT TOXICITY [None]
  - VERTIGO [None]
